FAERS Safety Report 16681106 (Version 1)
Quarter: 2019Q3

REPORT INFORMATION
  Report Type: Report from Study
  Country: None (occurrence: US)
  Receive Date: 20190808
  Receipt Date: 20190808
  Transmission Date: 20191004
  Serious: Yes (Other)
  Sender: FDA-Public Use
  Company Number: US-ABBVIE-19K-163-2867206-00

PATIENT
  Age: 53 Year
  Sex: Female

DRUGS (2)
  1. HUMIRA [Suspect]
     Active Substance: ADALIMUMAB
     Indication: ANKYLOSING SPONDYLITIS
     Route: 058
     Dates: start: 201804, end: 20190206
  2. HUMIRA [Suspect]
     Active Substance: ADALIMUMAB
     Route: 058
     Dates: start: 20190320

REACTIONS (7)
  - Neck surgery [Unknown]
  - Osteoarthritis [Recovering/Resolving]
  - Neck pain [Not Recovered/Not Resolved]
  - Fall [Unknown]
  - Procedural headache [Unknown]
  - Spinal decompression [Unknown]
  - Procedural nausea [Unknown]

NARRATIVE: CASE EVENT DATE: 201902
